FAERS Safety Report 8334117-6 (Version None)
Quarter: 2012Q1

REPORT INFORMATION
  Report Type: 
  Country: None (occurrence: None)
  Receive Date: 20120329
  Receipt Date: 20110317
  Transmission Date: 20120608
  Serious: Yes (Hospitalization)
  Sender: FDA-Public Use
  Company Number: WAES 1103USA02897

PATIENT
  Age: 48 Year
  Sex: Female

DRUGS (1)
  1. FOSAPREPITANT DIMEGLUMINE [Suspect]
     Indication: NEOPLASM MALIGNANT
     Dosage: 150 MG/1X/IV
     Route: 042

REACTIONS (2)
  - VOMITING [None]
  - NAUSEA [None]
